FAERS Safety Report 7998028-8 (Version None)
Quarter: 2011Q4

REPORT INFORMATION
  Report Type: 
  Country: None (occurrence: None)
  Receive Date: 20111221
  Receipt Date: 20101201
  Transmission Date: 20120403
  Serious: No
  Sender: FDA-Public Use
  Company Number: US-GLAXOSMITHKLINE-A0897217A

PATIENT
  Sex: Male

DRUGS (7)
  1. SYNTHROID [Concomitant]
  2. TOPROL-XL [Concomitant]
  3. CORTISONE ACETATE [Concomitant]
  4. LOVAZA [Suspect]
     Indication: BLOOD CHOLESTEROL INCREASED
     Dosage: 1CAP VARIABLE DOSE
     Route: 048
  5. VITAMIN D [Concomitant]
  6. ASPIRIN [Concomitant]
  7. LORAZEPAM [Concomitant]

REACTIONS (6)
  - PARAESTHESIA [None]
  - HYPOAESTHESIA [None]
  - PAIN [None]
  - DYSPEPSIA [None]
  - ABDOMINAL PAIN UPPER [None]
  - BACK PAIN [None]
